FAERS Safety Report 4365527-X (Version None)
Quarter: 2004Q2

REPORT INFORMATION
  Report Type: 
  Country: None (occurrence: None)
  Receive Date: 20040526
  Receipt Date: 20040302
  Transmission Date: 20050107
  Serious: Yes (Hospitalization)
  Sender: FDA-Public Use
  Company Number: 2004JP000292

PATIENT
  Age: 55 Year
  Sex: Female

DRUGS (3)
  1. SAWACILLIN [Suspect]
     Dosage: 750MG TWICE PER DAY
     Route: 048
     Dates: start: 20021213, end: 20021215
  2. TAKEPRON [Suspect]
     Dosage: 30MG TWICE PER DAY
     Route: 048
     Dates: start: 20021213, end: 20021215
  3. CLARITH [Suspect]
     Dosage: 200MG TWICE PER DAY
     Dates: start: 20021213, end: 20021215

REACTIONS (1)
  - DRUG ERUPTION [None]
